FAERS Safety Report 9473672 (Version 1)
Quarter: 2013Q3

REPORT INFORMATION
  Report Type: Spontaneous
  Country: US (occurrence: US)
  Receive Date: 20130823
  Receipt Date: 20130823
  Transmission Date: 20140515
  Serious: No
  Sender: FDA-Public Use
  Company Number: US-BRISTOL-MYERS SQUIBB COMPANY-16863045

PATIENT
  Age: 65 Year
  Sex: Female
  Weight: 98.86 kg

DRUGS (6)
  1. SPRYCEL [Suspect]
     Dates: start: 20120715
  2. ACYCLOVIR [Concomitant]
  3. VITAMIN D [Concomitant]
  4. CALCIUM [Concomitant]
  5. MAGNESIUM [Concomitant]
  6. ZOLOFT [Concomitant]

REACTIONS (3)
  - Insomnia [Recovering/Resolving]
  - Fatigue [Recovering/Resolving]
  - Stomatitis [Recovering/Resolving]
